FAERS Safety Report 8940388 (Version 1)
Quarter: 2012Q4

REPORT INFORMATION
  Report Type: 
  Country: US (occurrence: US)
  Receive Date: 20121203
  Receipt Date: 20121203
  Transmission Date: 20130627
  Serious: No
  Sender: FDA-Public Use
  Company Number: US-BAYER-2012-122430

PATIENT
  Sex: Male

DRUGS (5)
  1. AVELOX [Suspect]
     Dosage: UNK
     Route: 048
  2. NORVASC [Concomitant]
     Dosage: 5 mg, QD
     Route: 048
  3. VITAMIN C [Concomitant]
  4. FISH OIL [Concomitant]
  5. B-COMPLEX [VITAMIN B NOS] [Concomitant]

REACTIONS (1)
  - Drug hypersensitivity [None]
